FAERS Safety Report 8214321-8 (Version None)
Quarter: 2012Q1

REPORT INFORMATION
  Report Type: 
  Country: None (occurrence: None)
  Receive Date: 20120316
  Receipt Date: 20120307
  Transmission Date: 20120608
  Serious: Yes (Other)
  Sender: FDA-Public Use
  Company Number: GB-JNJFOC-20120304164

PATIENT
  Sex: Female

DRUGS (5)
  1. STELARA [Suspect]
     Indication: PSORIASIS
     Route: 058
  2. PYRIDOXINE HCL [Concomitant]
     Route: 065
  3. TEMAZEPAM [Concomitant]
     Route: 065
  4. MORPHINE [Concomitant]
     Route: 065
  5. PIZOTIFEN [Concomitant]
     Route: 065

REACTIONS (1)
  - HAEMATURIA [None]
